FAERS Safety Report 14643809 (Version 2)
Quarter: 2018Q2

REPORT INFORMATION
  Report Type: Spontaneous
  Country: US (occurrence: US)
  Receive Date: 20180315
  Receipt Date: 20180409
  Transmission Date: 20180711
  Serious: Yes (Hospitalization)
  Sender: FDA-Public Use
  Company Number: US-TEVA-2018-US-869744

PATIENT
  Age: 45 Year
  Sex: Male

DRUGS (2)
  1. HEPARIN [Suspect]
     Active Substance: HEPARIN SODIUM
     Indication: MESENTERIC VEIN THROMBOSIS
     Route: 042
  2. ENOXAPARIN [Suspect]
     Active Substance: ENOXAPARIN
     Indication: MESENTERIC VEIN THROMBOSIS
     Route: 065

REACTIONS (3)
  - Heparin-induced thrombocytopenia [Recovered/Resolved]
  - Pulmonary embolism [Unknown]
  - Venous thrombosis limb [Unknown]
